FAERS Safety Report 6187770-X (Version None)
Quarter: 2009Q2

REPORT INFORMATION
  Report Type: 
  Country: None (occurrence: None)
  Receive Date: 20090511
  Receipt Date: 20090511
  Transmission Date: 20091009
  Serious: No
  Sender: FDA-Public Use
  Company Number: None

PATIENT
  Sex: Female
  Weight: 46.2669 kg

DRUGS (1)
  1. FLUCONAZOLE [Suspect]
     Indication: FUNGAL INFECTION
     Dosage: 1 TABLET - 150 MG
     Dates: start: 20090417

REACTIONS (4)
  - DRUG HYPERSENSITIVITY [None]
  - EYELIDS PRURITUS [None]
  - GLAUCOMA [None]
  - SWELLING FACE [None]
